FAERS Safety Report 23003878 (Version 2)
Quarter: 2023Q4

REPORT INFORMATION
  Report Type: Report from Study
  Country: US (occurrence: US)
  Receive Date: 20230928
  Receipt Date: 20231003
  Transmission Date: 20240109
  Serious: Yes (Other)
  Sender: FDA-Public Use
  Company Number: US-ABBVIE-5426142

PATIENT
  Age: 64 Year
  Sex: Female

DRUGS (1)
  1. RINVOQ [Suspect]
     Active Substance: UPADACITINIB
     Indication: Colitis ulcerative
     Dosage: FORM STRENGTH: 30 MILLIGRAM
     Route: 048
     Dates: start: 20220508

REACTIONS (4)
  - Small intestinal obstruction [Not Recovered/Not Resolved]
  - Drug level decreased [Unknown]
  - Unevaluable event [Unknown]
  - Product residue present [Unknown]

NARRATIVE: CASE EVENT DATE: 20230301
